FAERS Safety Report 18404416 (Version 2)
Quarter: 2020Q4

REPORT INFORMATION
  Report Type: Other
  Country: US (occurrence: US)
  Receive Date: 20201020
  Receipt Date: 20201125
  Transmission Date: 20210114
  Serious: Yes (Death, Other)
  Sender: FDA-Public Use
  Company Number: US-ROCHE-2698692

PATIENT
  Age: 3 Year
  Sex: Female

DRUGS (3)
  1. GANCICLOVIR. [Suspect]
     Active Substance: GANCICLOVIR
     Indication: CYTOMEGALOVIRUS INFECTION
     Dosage: 5 MG/KG 1/12 HOUR(S) (5 MG/KG, BID (Q12HR) FOR 11 DAYS BUT DISCONTINUOUSLY)
     Route: 065
  2. RITUXIMAB. [Suspect]
     Active Substance: RITUXIMAB
     Indication: NEPHROBLASTOMA
     Dosage: (200 MG)
     Route: 065
  3. DEXAMETHASONE. [Suspect]
     Active Substance: DEXAMETHASONE
     Indication: NEPHROBLASTOMA
     Route: 065

REACTIONS (9)
  - Epstein-Barr virus associated lymphoproliferative disorder [Unknown]
  - Epstein-Barr viraemia [Unknown]
  - Pancytopenia [Unknown]
  - Pseudomembranous colitis [Unknown]
  - Product use issue [Unknown]
  - Off label use [Unknown]
  - Septic shock [Fatal]
  - Pneumonia [Unknown]
  - Cytomegalovirus viraemia [Unknown]
